FAERS Safety Report 6404924-5 (Version None)
Quarter: 2009Q4

REPORT INFORMATION
  Report Type: 
  Country: None (occurrence: None)
  Receive Date: 20091019
  Receipt Date: 20091009
  Transmission Date: 20100525
  Serious: Yes (Other)
  Sender: FDA-Public Use
  Company Number: DE-TEVA-199022ISR

PATIENT
  Sex: Female

DRUGS (2)
  1. COPAXONE [Suspect]
     Indication: MULTIPLE SCLEROSIS
     Route: 058
     Dates: start: 20090109
  2. SERTRALINE HCL [Concomitant]
     Indication: ADJUSTMENT DISORDER WITH DEPRESSED MOOD
     Dates: start: 20070904

REACTIONS (3)
  - GLAUCOMA [None]
  - INTRAOCULAR PRESSURE INCREASED [None]
  - IRITIS [None]
